FAERS Safety Report 7634464-7 (Version None)
Quarter: 2011Q3

REPORT INFORMATION
  Report Type: 
  Country: None (occurrence: None)
  Receive Date: 20110725
  Receipt Date: 20110715
  Transmission Date: 20111222
  Serious: Yes (Other)
  Sender: FDA-Public Use
  Company Number: PHHY2011DE48465

PATIENT
  Sex: Male
  Weight: 67.7 kg

DRUGS (2)
  1. METHYLPHENIDATE HCL [Suspect]
     Dosage: 20 MG, QD
     Route: 048
     Dates: start: 20100216
  2. RITALIN [Suspect]
     Dosage: 40 MG, QD
     Route: 048
     Dates: start: 20081019

REACTIONS (1)
  - INTRAOCULAR PRESSURE INCREASED [None]
